FAERS Safety Report 20714243 (Version 1)
Quarter: 2022Q2

REPORT INFORMATION
  Report Type: Spontaneous
  Country: CA (occurrence: None)
  Receive Date: 20220415
  Receipt Date: 20220415
  Transmission Date: 20220721
  Serious: Yes (Disabling)
  Sender: FDA-Public Use
  Company Number: None

PATIENT
  Age: 31 Year
  Sex: Female
  Weight: 47.25 kg

DRUGS (1)
  1. VYVANSE [Suspect]
     Active Substance: LISDEXAMFETAMINE DIMESYLATE
     Indication: Attention deficit hyperactivity disorder
     Dates: start: 20210501, end: 20220415

REACTIONS (6)
  - Peripheral vascular disorder [None]
  - Pedal pulse decreased [None]
  - Paraesthesia [None]
  - Peripheral coldness [None]
  - Peripheral coldness [None]
  - Erythema [None]

NARRATIVE: CASE EVENT DATE: 20220302
